FAERS Safety Report 14064625 (Version 3)
Quarter: 2018Q2

REPORT INFORMATION
  Report Type: Spontaneous
  Country: RS (occurrence: RS)
  Receive Date: 20171009
  Receipt Date: 20180425
  Transmission Date: 20180711
  Serious: Yes (Hospitalization, Other)
  Sender: FDA-Public Use
  Company Number: RS-IMPAX LABORATORIES, INC-2017-IPXL-02815

PATIENT
  Age: 29 Year
  Sex: Female

DRUGS (2)
  1. CHLOROQUINE PHOSPHATE. [Suspect]
     Active Substance: CHLOROQUINE PHOSPHATE
     Indication: PRODUCT USE IN UNAPPROVED INDICATION
  2. CHLOROQUINE PHOSPHATE. [Suspect]
     Active Substance: CHLOROQUINE PHOSPHATE
     Indication: SYSTEMIC LUPUS ERYTHEMATOSUS
     Dosage: UNK
     Route: 065

REACTIONS (4)
  - Systemic lupus erythematosus [Recovering/Resolving]
  - Pneumonitis [Recovering/Resolving]
  - Drug ineffective for unapproved indication [Unknown]
  - Thymus disorder [Recovered/Resolved]
